FAERS Safety Report 15557671 (Version 2)
Quarter: 2019Q1

REPORT INFORMATION
  Report Type: Report from Study
  Country: None (occurrence: US)
  Receive Date: 20181027
  Receipt Date: 20190220
  Transmission Date: 20190417
  Serious: Yes (Hospitalization)
  Sender: FDA-Public Use
  Company Number: US-ABBVIE-18K-163-2532502-00

PATIENT
  Age: 58 Year
  Sex: Female

DRUGS (1)
  1. HUMIRA [Suspect]
     Active Substance: ADALIMUMAB
     Indication: RHEUMATOID ARTHRITIS
     Route: 058

REACTIONS (4)
  - Chronic obstructive pulmonary disease [Unknown]
  - Hypercapnia [Unknown]
  - Asthma [Unknown]
  - Blood carbon monoxide abnormal [Unknown]

NARRATIVE: CASE EVENT DATE: 201810
